FAERS Safety Report 8180440-8 (Version None)
Quarter: 2012Q1

REPORT INFORMATION
  Report Type: 
  Country: None (occurrence: None)
  Receive Date: 20120302
  Receipt Date: 20120222
  Transmission Date: 20120608
  Serious: Yes (Hospitalization)
  Sender: FDA-Public Use
  Company Number: JP-FRI-1000028165

PATIENT
  Age: 78 Year
  Sex: Female
  Weight: 38 kg

DRUGS (3)
  1. MEMANTINE [Suspect]
     Indication: DEMENTIA ALZHEIMER'S TYPE
     Dosage: 5 MG
     Route: 048
     Dates: start: 20110619, end: 20110621
  2. RESPLEN [Suspect]
     Indication: COUGH
     Dosage: 60 MG
     Route: 048
     Dates: start: 20110618, end: 20110624
  3. EPADEL [Concomitant]
     Indication: HYPERLIPIDAEMIA
     Dosage: 600 MG
     Route: 048
     Dates: start: 20090502

REACTIONS (2)
  - AGITATION [None]
  - HALLUCINATION, AUDITORY [None]
